FAERS Safety Report 21088668 (Version 2)
Quarter: 2023Q1

REPORT INFORMATION
  Report Type: Spontaneous
  Country: US (occurrence: US)
  Receive Date: 20220715
  Receipt Date: 20230302
  Transmission Date: 20230418
  Serious: Yes (Other)
  Sender: FDA-Public Use
  Company Number: US-PFIZER INC-2020516482

PATIENT
  Age: 54 Year
  Sex: Female

DRUGS (1)
  1. XELJANZ XR [Suspect]
     Active Substance: TOFACITINIB CITRATE
     Dosage: 11 MG, DAILY

REACTIONS (6)
  - Multiple sclerosis [Unknown]
  - Diabetes mellitus [Unknown]
  - Systemic lupus erythematosus [Unknown]
  - Condition aggravated [Unknown]
  - Pain [Unknown]
  - Fibromyalgia [Unknown]
